FAERS Safety Report 5298319-8 (Version None)
Quarter: 2007Q2

REPORT INFORMATION
  Report Type: 
  Country: None (occurrence: None)
  Receive Date: 20070409
  Receipt Date: 20070327
  Transmission Date: 20071010
  Serious: Yes (Other)
  Sender: FDA-Public Use
  Company Number: B0464884A

PATIENT
  Age: 55 Year
  Sex: Male

DRUGS (6)
  1. LITHIUM CARBONATE [Suspect]
     Indication: SCHIZOPHRENIA
     Dosage: 600 MG, PER DAY; UNK
     Dates: start: 19970101
  2. VALPROIC ACID [Concomitant]
  3. NITRAZEPAM [Concomitant]
  4. HALOPERIDOL [Concomitant]
  5. METHOTRIMEPRAZINE [Concomitant]
  6. UNKNOWN [Concomitant]

REACTIONS (4)
  - DRUG TOXICITY [None]
  - OPTIC NERVE DISORDER [None]
  - PAPILLOEDEMA [None]
  - VISUAL ACUITY REDUCED [None]
